FAERS Safety Report 11391578 (Version 3)
Quarter: 2015Q3

REPORT INFORMATION
  Report Type: Spontaneous
  Country: DE (occurrence: DE)
  Receive Date: 20150818
  Receipt Date: 20150826
  Transmission Date: 20151125
  Serious: Yes (Life-Threatening, Hospitalization)
  Sender: FDA-Public Use
  Company Number: DE-B.I. PHARMACEUTICALS,INC./RIDGEFIELD-2015-BI-44597DE

PATIENT
  Age: 72 Year
  Sex: Male
  Weight: 85 kg

DRUGS (7)
  1. NEBIVOLOL. [Concomitant]
     Active Substance: NEBIVOLOL
     Indication: CORONARY ARTERY DISEASE
  2. NEBIVOLOL. [Concomitant]
     Active Substance: NEBIVOLOL
     Indication: HYPERTENSION
     Dosage: 0.5 ANZ
     Route: 048
     Dates: start: 2012, end: 201508
  3. PRADAXA [Suspect]
     Active Substance: DABIGATRAN ETEXILATE MESYLATE
     Indication: ATRIAL FIBRILLATION
     Dosage: 300 MG
     Route: 048
     Dates: start: 201202, end: 20150803
  4. PRADAXA [Suspect]
     Active Substance: DABIGATRAN ETEXILATE MESYLATE
     Dosage: 300 MG
     Route: 048
     Dates: start: 20150805
  5. AMLODIPIN [Concomitant]
     Active Substance: AMLODIPINE BESYLATE
     Indication: HYPERTENSION
     Dosage: 5 MG
     Route: 048
     Dates: start: 2012, end: 201508
  6. RESILEZ [Concomitant]
     Indication: PRODUCT USED FOR UNKNOWN INDICATION
     Dosage: 300 MG
     Route: 048
     Dates: start: 2012, end: 201508
  7. NEBIVOLOL. [Concomitant]
     Active Substance: NEBIVOLOL
     Indication: ATRIAL FIBRILLATION

REACTIONS (24)
  - Hemiparesis [Recovered/Resolved with Sequelae]
  - Foot operation [Unknown]
  - Cerebral atrophy [Unknown]
  - Impaired healing [Unknown]
  - VIIth nerve paralysis [Unknown]
  - Paraesthesia [Unknown]
  - Pyrexia [Recovered/Resolved]
  - Inflammation [Recovered/Resolved]
  - Cough [Recovered/Resolved]
  - Dysphagia [Recovered/Resolved]
  - Ataxia [Recovered/Resolved with Sequelae]
  - Pneumonia aspiration [Unknown]
  - Fall [Unknown]
  - Transient ischaemic attack [Recovered/Resolved with Sequelae]
  - Pulmonary congestion [Recovered/Resolved]
  - Delirium tremens [Unknown]
  - Hypoaesthesia [Unknown]
  - Dyspnoea [Recovered/Resolved]
  - Sensorimotor disorder [Recovered/Resolved with Sequelae]
  - Cerebrovascular accident [Unknown]
  - Dysarthria [Recovered/Resolved]
  - Muscular weakness [Unknown]
  - Facial nerve disorder [Unknown]
  - Microangiopathy [Unknown]

NARRATIVE: CASE EVENT DATE: 20150805
